FAERS Safety Report 14315188 (Version 2)
Quarter: 2018Q1

REPORT INFORMATION
  Report Type: Spontaneous
  Country: US (occurrence: US)
  Receive Date: 20171221
  Receipt Date: 20180215
  Transmission Date: 20180509
  Serious: Yes (Hospitalization, Other)
  Sender: FDA-Public Use
  Company Number: US-SAOL THERAPEUTICS-2017SAO03461

PATIENT
  Age: 54 Year
  Sex: Male

DRUGS (2)
  1. BACLOFEN. [Suspect]
     Active Substance: BACLOFEN
     Dosage: 75 ?G, \DAY
     Dates: start: 20171212
  2. BACLOFEN. [Suspect]
     Active Substance: BACLOFEN
     Dosage: 81 ?G, \DAY
     Route: 037
     Dates: end: 20171212

REACTIONS (5)
  - Device dislocation [Recovered/Resolved]
  - Back pain [Recovered/Resolved]
  - Nerve root compression [Recovered/Resolved]
  - Gait disturbance [Recovered/Resolved]
  - Therapy non-responder [Recovered/Resolved]

NARRATIVE: CASE EVENT DATE: 20171105
